FAERS Safety Report 9612990 (Version 1)
Quarter: 2013Q4

REPORT INFORMATION
  Report Type: Spontaneous
  Country: US (occurrence: US)
  Receive Date: 20131010
  Receipt Date: 20131010
  Transmission Date: 20140711
  Serious: Yes (Hospitalization)
  Sender: FDA-Public Use
  Company Number: 2013SP002858

PATIENT
  Age: 43 Year
  Sex: Female
  Weight: 108 kg

DRUGS (9)
  1. LATUDA [Suspect]
     Indication: ANXIETY
     Route: 048
     Dates: start: 2013
  2. LATUDA [Suspect]
     Indication: ANXIETY
     Route: 048
     Dates: start: 20130809, end: 2013
  3. KLONOPIN [Concomitant]
     Indication: ANXIETY
     Route: 048
  4. ADDERALL [Concomitant]
     Indication: PRODUCT USED FOR UNKNOWN INDICATION
     Route: 048
  5. CELEXA                             /00582602/ [Concomitant]
     Indication: PRODUCT USED FOR UNKNOWN INDICATION
     Route: 048
  6. LAMICTAL [Concomitant]
     Indication: PRODUCT USED FOR UNKNOWN INDICATION
     Route: 048
  7. AMBIEN [Concomitant]
     Indication: INSOMNIA
     Route: 048
  8. GEODON                             /01487002/ [Concomitant]
     Indication: PRODUCT USED FOR UNKNOWN INDICATION
  9. ALL OTHER THERAPEUTIC PRODUCTS [Concomitant]
     Indication: PRODUCT USED FOR UNKNOWN INDICATION

REACTIONS (10)
  - Hostility [Recovered/Resolved]
  - Violence-related symptom [Recovered/Resolved]
  - Erythema [None]
  - Rash pruritic [None]
  - Skin irritation [None]
  - Confusional state [Unknown]
  - Weight increased [Unknown]
  - Drug dose omission [None]
  - Drug administration error [None]
  - Off label use [None]
